FAERS Safety Report 5494112-1 (Version None)
Quarter: 2007Q4

REPORT INFORMATION
  Report Type: 
  Country: None (occurrence: None)
  Receive Date: 20071022
  Receipt Date: 20071009
  Transmission Date: 20080405
  Serious: Yes (Hospitalization)
  Sender: FDA-Public Use
  Company Number: MEDI-0006028

PATIENT
  Sex: Male

DRUGS (1)
  1. ETHYOL [Suspect]
     Dosage: 500 MG, SUBCUTANEOUS
     Route: 058
     Dates: start: 20070626

REACTIONS (2)
  - FACE OEDEMA [None]
  - STEVENS-JOHNSON SYNDROME [None]
